FAERS Safety Report 11898881 (Version 1)
Quarter: 2016Q1

REPORT INFORMATION
  Report Type: Spontaneous
  Country: IT (occurrence: IT)
  Receive Date: 20160108
  Receipt Date: 20160108
  Transmission Date: 20160526
  Serious: Yes (Hospitalization)
  Sender: FDA-Public Use
  Company Number: IT-ENDO PHARMACEUTICALS INC.-2016-000149

PATIENT
  Age: 63 Year
  Sex: Female

DRUGS (4)
  1. FROVA [Suspect]
     Active Substance: FROVATRIPTAN SUCCINATE
     Indication: HEADACHE
     Route: 048
     Dates: end: 201510
  2. ATENOLOL TABLETS [Concomitant]
     Active Substance: ATENOLOL
     Indication: ARRHYTHMIA
     Route: 065
  3. DIFMETRE [Suspect]
     Active Substance: CAFFEINE\INDOMETHACIN\PROCHLORPERAZINE MALEATE
     Indication: HEADACHE
     Route: 048
     Dates: end: 201510
  4. COMBISARTAN [Concomitant]
     Active Substance: HYDROCHLOROTHIAZIDE\LOSARTAN POTASSIUM
     Indication: HYPERTENSION
     Route: 065

REACTIONS (3)
  - Drug abuse [Recovered/Resolved]
  - Confusional state [Recovered/Resolved]
  - Paraesthesia [Recovered/Resolved]

NARRATIVE: CASE EVENT DATE: 20151012
